FAERS Safety Report 4621097-X (Version None)
Quarter: 2005Q1

REPORT INFORMATION
  Report Type: 
  Country: None (occurrence: None)
  Receive Date: 20050325
  Receipt Date: 20050315
  Transmission Date: 20050727
  Serious: Yes (Other)
  Sender: FDA-Public Use
  Company Number: 2005045747

PATIENT
  Sex: Female

DRUGS (8)
  1. CELEBREX [Suspect]
     Indication: ARTHROPATHY
     Dosage: 200 MG, ORAL
     Route: 048
     Dates: start: 20040506
  2. ASPIRIN [Concomitant]
  3. METOPROLOL TARTRATE [Concomitant]
  4. ALL OTHER THERAPEUTIC PRODUCTS (ALL OTHER THERAPEUTIC PRODUCTS) [Concomitant]
  5. IBUPROFEN [Concomitant]
  6. PANADELINE CO (CODEINE PHOSPHATE, PARACETAMOL) [Concomitant]
  7. DAKTACORT (HYDROCORTISONE, MICONAZOLE NITRATE) [Concomitant]
  8. NICOTINE [Concomitant]

REACTIONS (4)
  - CHEST PAIN [None]
  - DISTURBANCE IN ATTENTION [None]
  - PALPITATIONS [None]
  - VISUAL DISTURBANCE [None]
